FAERS Safety Report 7394312-X (Version None)
Quarter: 2011Q2

REPORT INFORMATION
  Report Type: 
  Country: None (occurrence: None)
  Receive Date: 20110405
  Receipt Date: 20110323
  Transmission Date: 20111010
  Serious: Yes (Other)
  Sender: FDA-Public Use
  Company Number: US-CELGENEUS-163-20785-11032894

PATIENT
  Sex: Female
  Weight: 61 kg

DRUGS (2)
  1. PREDNISONE [Concomitant]
     Route: 065
  2. THALOMID [Suspect]
     Indication: MYELOFIBROSIS
     Dosage: 50 MILLIGRAM
     Route: 048
     Dates: start: 20100121

REACTIONS (3)
  - OEDEMA PERIPHERAL [None]
  - BALANCE DISORDER [None]
  - FALL [None]
